FAERS Safety Report 10978932 (Version 1)
Quarter: 2015Q1

REPORT INFORMATION
  Report Type: Spontaneous
  Country: US (occurrence: None)
  Receive Date: 20150226
  Receipt Date: 20150226
  Transmission Date: 20150721
  Serious: No
  Sender: FDA-Public Use
  Company Number: TPA2009A02699

PATIENT
  Age: 51 Year
  Sex: Female
  Weight: 86.18 kg

DRUGS (7)
  1. ULORIC [Suspect]
     Active Substance: FEBUXOSTAT
     Indication: GOUT
     Route: 048
     Dates: start: 20090614, end: 20090714
  2. NOVOLOG INSULIN (INSULIN ASPART) [Concomitant]
  3. CARDIZEM [Concomitant]
     Active Substance: DILTIAZEM HYDROCHLORIDE
  4. LANTUS INSULIN (INSULIN GLARGINE) [Concomitant]
  5. LISINOPRIL. [Concomitant]
     Active Substance: LISINOPRIL
  6. LASIX [Concomitant]
     Active Substance: FUROSEMIDE
  7. MICARDIS [Concomitant]
     Active Substance: TELMISARTAN

REACTIONS (3)
  - Gout [None]
  - Condition aggravated [None]
  - Oedema peripheral [None]

NARRATIVE: CASE EVENT DATE: 20090829
